FAERS Safety Report 24849351 (Version 5)
Quarter: 2025Q2

REPORT INFORMATION
  Report Type: Report from Study
  Country: US (occurrence: US)
  Receive Date: 20250116
  Receipt Date: 20250403
  Transmission Date: 20250716
  Serious: Yes (Hospitalization, Other)
  Sender: BAYER
  Company Number: US-BAYER-2024A132508

PATIENT
  Sex: Female
  Weight: 59.864 kg

DRUGS (36)
  1. ADEMPAS [Suspect]
     Active Substance: RIOCIGUAT
     Indication: Pulmonary arterial hypertension
     Route: 048
     Dates: start: 20240703
  2. ADEMPAS [Suspect]
     Active Substance: RIOCIGUAT
     Indication: Pulmonary arterial hypertension
     Dosage: 2.5 MG, TID
     Route: 048
  3. ADEMPAS [Suspect]
     Active Substance: RIOCIGUAT
     Indication: Pulmonary arterial hypertension
     Dosage: 2.5 MG, TID
     Route: 048
  4. ADEMPAS [Suspect]
     Active Substance: RIOCIGUAT
     Indication: Pulmonary arterial hypertension
     Dosage: 2 MG, TID
     Route: 048
  5. ADEMPAS [Suspect]
     Active Substance: RIOCIGUAT
     Indication: Pulmonary arterial hypertension
     Dosage: 2 MG, TID
     Route: 048
  6. ASPIRIN [Suspect]
     Active Substance: ASPIRIN
     Dates: end: 202409
  7. OPSUMIT [Suspect]
     Active Substance: MACITENTAN
     Dates: start: 20240926
  8. INSPRA [Suspect]
     Active Substance: EPLERENONE
  9. ELIQUIS [Suspect]
     Active Substance: APIXABAN
  10. AMLODIPINE BESYLATE [Concomitant]
     Active Substance: AMLODIPINE BESYLATE
  11. DICYCLOMINE HYDROCHLORIDE [Concomitant]
     Active Substance: DICYCLOMINE HYDROCHLORIDE
  12. DOXAZOSIN MESYLATE [Concomitant]
     Active Substance: DOXAZOSIN MESYLATE
  13. OMEPRAZOLE [Concomitant]
     Active Substance: OMEPRAZOLE
  14. LABETALOL HYDROCHLORIDE [Concomitant]
     Active Substance: LABETALOL HYDROCHLORIDE
  15. DULOXETINE HYDROCHLORIDE [Concomitant]
     Active Substance: DULOXETINE HYDROCHLORIDE
  16. FUROSEMIDE [Concomitant]
     Active Substance: FUROSEMIDE
  17. VITAMIN C [Concomitant]
     Active Substance: ASCORBIC ACID
  18. TIZANIDINE HYDROCHLORIDE [Concomitant]
     Active Substance: TIZANIDINE HYDROCHLORIDE
  19. ACETAMINOPHEN [Concomitant]
     Active Substance: ACETAMINOPHEN
  20. ACETAMINOPHEN\HYDROCODONE [Concomitant]
     Active Substance: ACETAMINOPHEN\HYDROCODONE
  21. ESTRADIOL [Concomitant]
     Active Substance: ESTRADIOL
  22. PANTOPRAZOLE SODIUM [Concomitant]
     Active Substance: PANTOPRAZOLE SODIUM
  23. VITAMIN D3 [Concomitant]
     Active Substance: CHOLECALCIFEROL
  24. MAGNESIUM [Concomitant]
     Active Substance: MAGNESIUM
  25. CALCITONIN SALMON [Concomitant]
     Active Substance: CALCITONIN SALMON
  26. EPLERENONE [Concomitant]
     Active Substance: EPLERENONE
  27. LISINOPRIL [Concomitant]
     Active Substance: LISINOPRIL
  28. OXYGEN [Concomitant]
     Active Substance: OXYGEN
  29. IRON [Concomitant]
     Active Substance: IRON
  30. FERROUS SULFATE [Concomitant]
     Active Substance: FERROUS SULFATE
  31. HYDRALAZINE HCL [Concomitant]
     Active Substance: HYDRALAZINE HYDROCHLORIDE
  32. VITAMIN D2 [Concomitant]
     Active Substance: ERGOCALCIFEROL
  33. LASIX [Concomitant]
     Active Substance: FUROSEMIDE
  34. INDOMETHACIN [Concomitant]
     Active Substance: INDOMETHACIN
  35. SERTRALINE HYDROCHLORIDE [Concomitant]
     Active Substance: SERTRALINE HYDROCHLORIDE
  36. ABILIFY [Concomitant]
     Active Substance: ARIPIPRAZOLE

REACTIONS (37)
  - Chronic kidney disease [Not Recovered/Not Resolved]
  - Medical procedure [None]
  - Spinal operation [None]
  - Blood pressure systolic increased [Recovering/Resolving]
  - Pain [Recovered/Resolved]
  - Loss of consciousness [None]
  - Pulmonary embolism [None]
  - Hypertensive heart disease [Recovering/Resolving]
  - Suicidal ideation [None]
  - Contusion [Recovered/Resolved]
  - COVID-19 [None]
  - Bedridden [Not Recovered/Not Resolved]
  - Blood pressure systolic decreased [None]
  - Fluid retention [None]
  - Glomerular filtration rate decreased [Recovering/Resolving]
  - Increased tendency to bruise [Not Recovered/Not Resolved]
  - Hypersomnia [Not Recovered/Not Resolved]
  - Solar lentigo [None]
  - Fatigue [Not Recovered/Not Resolved]
  - Oedema peripheral [None]
  - Headache [Not Recovered/Not Resolved]
  - Hypotension [Not Recovered/Not Resolved]
  - Weight increased [Recovered/Resolved]
  - Hemicrania continua [Not Recovered/Not Resolved]
  - Back pain [Not Recovered/Not Resolved]
  - Weight decreased [Recovering/Resolving]
  - Abdominal pain upper [None]
  - Decreased activity [None]
  - Weight increased [Not Recovered/Not Resolved]
  - Pain [Not Recovered/Not Resolved]
  - Hypersomnia [None]
  - Multiple allergies [None]
  - Rhinorrhoea [None]
  - Oropharyngeal pain [None]
  - Blood pressure fluctuation [Recovering/Resolving]
  - Hypotension [Recovering/Resolving]
  - Headache [Not Recovered/Not Resolved]

NARRATIVE: CASE EVENT DATE: 20240101
